FAERS Safety Report 6528987-1 (Version None)
Quarter: 2009Q4

REPORT INFORMATION
  Report Type: 
  Country: None (occurrence: None)
  Receive Date: 20091222
  Receipt Date: 20091208
  Transmission Date: 20100525
  Serious: Yes (Hospitalization)
  Sender: FDA-Public Use
  Company Number: 2009AL007665

PATIENT
  Age: 35 Year
  Sex: Female

DRUGS (7)
  1. SERTRALINE HYDROCHLORIDE [Suspect]
     Indication: DEPRESSION
     Dosage: 100 MG; QD; UNK
  2. VENLAFAXINE HCL [Suspect]
     Dosage: 150 MG; QD; UNK
  3. QUETIAPINE [Concomitant]
  4. DULOXETINE [Concomitant]
  5. LAMOTRIGINE [Concomitant]
  6. MIRTAZAPINE [Concomitant]
  7. BUSPIRONE [Concomitant]

REACTIONS (5)
  - ANAEMIA [None]
  - HYPERTENSION [None]
  - NO THERAPEUTIC RESPONSE [None]
  - OXYGEN SATURATION DECREASED [None]
  - UPPER GASTROINTESTINAL HAEMORRHAGE [None]
